FAERS Safety Report 8313726-4 (Version None)
Quarter: 2012Q2

REPORT INFORMATION
  Report Type: 
  Country: None (occurrence: None)
  Receive Date: 20120426
  Receipt Date: 20120416
  Transmission Date: 20120825
  Serious: Yes (Hospitalization)
  Sender: FDA-Public Use
  Company Number: US-SANOFI-AVENTIS-2012SA026552

PATIENT
  Age: 87 Year
  Sex: Female
  Weight: 73 kg

DRUGS (13)
  1. ASPIRIN [Concomitant]
  2. VALSARTAN [Concomitant]
  3. ATORVASTATIN [Concomitant]
  4. PLAVIX [Suspect]
     Indication: STENT PLACEMENT
     Route: 048
     Dates: start: 20110101
  5. ALPRAZOLAM [Concomitant]
  6. PEPCID [Concomitant]
  7. POTASSIUM CHLORIDE [Concomitant]
  8. SYNTHROID [Concomitant]
  9. ALBUTEROL SULFATE [Concomitant]
     Dosage: QID AND PRN DOSE:2 PUFF(S)
  10. METOPROLOL TARTRATE [Concomitant]
  11. FUROSEMIDE [Concomitant]
  12. ACETAMINOPHEN [Concomitant]
     Dosage: QID AND PRN
  13. PLAVIX [Suspect]
     Indication: CORONARY ARTERY OCCLUSION
     Route: 048
     Dates: start: 20110101

REACTIONS (3)
  - SEPSIS [None]
  - COLITIS [None]
  - GASTROOESOPHAGEAL REFLUX DISEASE [None]
